FAERS Safety Report 5869472-X (Version None)
Quarter: 2008Q3

REPORT INFORMATION
  Report Type: 
  Country: None (occurrence: None)
  Receive Date: 20080828
  Receipt Date: 20080815
  Transmission Date: 20090109
  Serious: Yes (Hospitalization)
  Sender: FDA-Public Use
  Company Number: 2008AL009662

PATIENT
  Age: 25 Year
  Sex: Female

DRUGS (4)
  1. PHENYTOIN [Suspect]
     Indication: GRAND MAL CONVULSION
     Dosage: 100 MG; TID; PO
     Route: 048
     Dates: start: 20080803, end: 20080807
  2. LAMOTRIGINE [Concomitant]
  3. ZONEGRAN [Concomitant]
  4. TEGRETOL [Concomitant]

REACTIONS (1)
  - POSTICTAL STATE [None]
